FAERS Safety Report 22053978 (Version 1)
Quarter: 2023Q1

REPORT INFORMATION
  Report Type: Spontaneous
  Country: US (occurrence: US)
  Receive Date: 20230302
  Receipt Date: 20230302
  Transmission Date: 20230418
  Serious: No
  Sender: FDA-Public Use
  Company Number: US-BAYER-2023A019770

PATIENT
  Age: 82 Year
  Sex: Male

DRUGS (2)
  1. GADAVIST [Suspect]
     Active Substance: GADOBUTROL
     Indication: Scan brain
     Dosage: 10 ML, ONCE
     Dates: start: 20220201, end: 20220201
  2. GADAVIST [Suspect]
     Active Substance: GADOBUTROL
     Indication: Carotid artery restenosis
     Dosage: 15 ML, ONCE
     Dates: start: 20220214, end: 20230214

REACTIONS (2)
  - Urticaria [Recovered/Resolved]
  - Urticaria [Recovered/Resolved]

NARRATIVE: CASE EVENT DATE: 20220201
